FAERS Safety Report 8075727-3 (Version None)
Quarter: 2012Q1

REPORT INFORMATION
  Report Type: 
  Country: None (occurrence: None)
  Receive Date: 20120125
  Receipt Date: 20120125
  Transmission Date: 20120608
  Serious: Yes (Other)
  Sender: FDA-Public Use
  Company Number: None

PATIENT
  Age: 68 Year
  Sex: Male

DRUGS (6)
  1. ACYCLOVIR [Concomitant]
  2. NEUPOGEN [Concomitant]
  3. REVLIMID [Suspect]
     Indication: CHRONIC LYMPHOCYTIC LEUKAEMIA
     Dosage: 10MG QDX21D/28D ORALLY
     Route: 048
  4. REVLIMID [Concomitant]
  5. SEPTRA DS [Concomitant]
  6. LIPITOR [Concomitant]

REACTIONS (8)
  - FAECES DISCOLOURED [None]
  - HYPOAESTHESIA ORAL [None]
  - ARTHRALGIA [None]
  - PRURITUS [None]
  - COUGH [None]
  - HYPOAESTHESIA [None]
  - HEADACHE [None]
  - PHARYNGEAL DISORDER [None]
